FAERS Safety Report 18105016 (Version 1)
Quarter: 2020Q3

REPORT INFORMATION
  Report Type: Other
  Country: US (occurrence: US)
  Receive Date: 20200803
  Receipt Date: 20200803
  Transmission Date: 20201103
  Serious: Yes (Other)
  Sender: FDA-Public Use
  Company Number: US-NOVA LABORATORIES LIMITED-2088059

PATIENT
  Age: 19 Year
  Sex: Male

DRUGS (2)
  1. PURIXAN [Suspect]
     Active Substance: MERCAPTOPURINE
     Indication: CROHN^S DISEASE
  2. MESALAMINE. [Suspect]
     Active Substance: MESALAMINE

REACTIONS (2)
  - Acute febrile neutrophilic dermatosis [Unknown]
  - Off label use [None]
